FAERS Safety Report 7768290 (Version 4)
Quarter: 2013Q4

REPORT INFORMATION
  Report Type: Spontaneous
  Country: US (occurrence: US)
  Receive Date: 20110121
  Receipt Date: 20131113
  Transmission Date: 20140711
  Serious: Yes (Hospitalization)
  Sender: FDA-Public Use
  Company Number: US-B.I. PHARMACEUTICALS,INC./RIDGEFIELD-2011-BP-01089BP

PATIENT
  Age: 83 Year
  Sex: Female
  Weight: 99.79 kg

DRUGS (15)
  1. PRADAXA [Suspect]
     Indication: ATRIAL FIBRILLATION
     Dosage: 300 MG
     Route: 048
     Dates: start: 20101229, end: 20110204
  2. PRADAXA [Suspect]
     Indication: CEREBROVASCULAR ACCIDENT PROPHYLAXIS
  3. PRADAXA [Suspect]
     Indication: ANTICOAGULANT THERAPY
  4. LISINOPRIL [Concomitant]
     Indication: HYPERTENSION
     Dosage: 20 MG
  5. METOPROLOL [Concomitant]
     Indication: HYPERTENSION
     Dosage: 25 MG
  6. GLIPIZIDE [Concomitant]
     Indication: DIABETES MELLITUS
     Dosage: 5 MG
  7. ASA [Concomitant]
     Indication: PROPHYLAXIS
     Dosage: 81 MG
     Dates: end: 20110204
  8. CHOLESTEROL MEDS [Concomitant]
     Indication: BLOOD CHOLESTEROL INCREASED
  9. PROTONIX [Concomitant]
     Indication: GASTROOESOPHAGEAL REFLUX DISEASE
  10. LASIX [Concomitant]
     Dosage: 40 MG
  11. PRAVASTATIN [Concomitant]
     Dosage: 40 MG
  12. MACROBID [Concomitant]
     Dosage: 100 MG
  13. NORCO [Concomitant]
  14. ALBUTEROL INHALER [Concomitant]
  15. NITROGLYCERIN [Concomitant]
     Indication: CHEST PAIN
     Route: 060

REACTIONS (5)
  - Gastrointestinal haemorrhage [Unknown]
  - Anaemia [Unknown]
  - Breast pain [Recovered/Resolved]
  - Haematuria [Recovered/Resolved]
  - Melaena [Not Recovered/Not Resolved]
